FAERS Safety Report 18226552 (Version 2)
Quarter: 2025Q4

REPORT INFORMATION
  Report Type: Report from Study
  Country: CA (occurrence: CA)
  Receive Date: 20200903
  Receipt Date: 20251107
  Transmission Date: 20260117
  Serious: Yes (Other)
  Sender: ACCORD
  Company Number: None

PATIENT
  Age: 57 Year
  Sex: Female

DRUGS (14)
  1. METHOTREXATE [Suspect]
     Active Substance: METHOTREXATE
     Indication: Product used for unknown indication
     Dosage: 1 EVERY 1 WEEKS
     Route: 065
  2. CANDESARTAN [Suspect]
     Active Substance: CANDESARTAN
     Indication: Product used for unknown indication
     Dosage: 1 EVERY 1 DAYS
     Route: 048
  3. BISOPROLOL FUMARATE [Suspect]
     Active Substance: BISOPROLOL FUMARATE
     Indication: Product used for unknown indication
     Dosage: 1 EVERY 1 DAYS
     Route: 048
  4. LEFLUNOMIDE [Suspect]
     Active Substance: LEFLUNOMIDE
     Indication: Product used for unknown indication
     Route: 065
  5. CHOLECALCIFEROL [Concomitant]
     Active Substance: CHOLECALCIFEROL
     Route: 048
  6. CYCLOBENZAPRINE HYDROCHLORIDE [Concomitant]
     Active Substance: CYCLOBENZAPRINE HYDROCHLORIDE
     Route: 048
  7. ENBREL [Concomitant]
     Active Substance: ETANERCEPT
     Route: 065
  8. FERROUS GLUCONATE [Concomitant]
     Active Substance: FERROUS GLUCONATE
     Dosage: 1 EVERY 1 DAYS
     Route: 065
  9. FLURBIPROFEN [Concomitant]
     Active Substance: FLURBIPROFEN
     Route: 048
  10. METHOTREXATE [Concomitant]
     Active Substance: METHOTREXATE
     Route: 065
  11. PANTOPRAZOLE SODIUM [Concomitant]
     Active Substance: PANTOPRAZOLE SODIUM
     Dosage: 1 EVERY 1 DAYS, ENTERIC COATED
     Route: 065
  12. PREDNISONE [Concomitant]
     Active Substance: PREDNISONE
     Dosage: 1 EVERY 1 DAYS
     Route: 065
  13. RHINOCORT AQUA [Concomitant]
     Active Substance: BUDESONIDE
     Dosage: METERED DOSE, 1 EVERY 1 DAYS, POWDER
     Route: 065
  14. SULFASALAZINE [Concomitant]
     Active Substance: SULFASALAZINE

REACTIONS (13)
  - Arthralgia [Unknown]
  - Blood parathyroid hormone increased [Unknown]
  - Blood pressure decreased [Unknown]
  - Hypertension [Unknown]
  - Joint swelling [Unknown]
  - Musculoskeletal stiffness [Unknown]
  - Peptic ulcer [Unknown]
  - Rheumatoid arthritis [Unknown]
  - Supraventricular tachycardia [Unknown]
  - Blood thyroid stimulating hormone increased [Unknown]
  - Synovitis [Unknown]
  - Thyroid mass [Unknown]
  - Vitamin D decreased [Unknown]
